FAERS Safety Report 16479708 (Version 9)
Quarter: 2020Q2

REPORT INFORMATION
  Report Type: Report from Study
  Country: US (occurrence: US)
  Receive Date: 20190626
  Receipt Date: 20200512
  Transmission Date: 20200713
  Serious: Yes (Other)
  Sender: FDA-Public Use
  Company Number: US-TESARO-2019-TSO01489-US

PATIENT
  Sex: Female

DRUGS (4)
  1. NIRAPARIB [Suspect]
     Active Substance: NIRAPARIB
     Dosage: 100 MG, QD
  2. NIRAPARIB [Suspect]
     Active Substance: NIRAPARIB
     Indication: UTERINE CANCER
     Dosage: 100 MG, DAILY, 6PM W/FOOD
     Dates: start: 20190330
  3. NIRAPARIB [Suspect]
     Active Substance: NIRAPARIB
     Dosage: 300 MG, QD
  4. NIRAPARIB [Suspect]
     Active Substance: NIRAPARIB
     Indication: ENDOMETRIAL CANCER
     Dosage: 100 MG DAILY AT 6 PM WITH FOOD

REACTIONS (24)
  - Diarrhoea [Recovered/Resolved]
  - Carbohydrate antigen 125 increased [Recovering/Resolving]
  - Product size issue [Unknown]
  - Blood sodium decreased [Not Recovered/Not Resolved]
  - Red blood cell count decreased [Not Recovered/Not Resolved]
  - Nausea [Unknown]
  - Thrombosis [Recovered/Resolved]
  - Taste disorder [Not Recovered/Not Resolved]
  - Dry mouth [Recovered/Resolved]
  - Underdose [Unknown]
  - Product dose omission [Unknown]
  - Decreased appetite [Recovering/Resolving]
  - Insomnia [Not Recovered/Not Resolved]
  - Blood creatinine increased [Unknown]
  - Glossodynia [Recovered/Resolved]
  - Abdominal discomfort [Unknown]
  - Retching [Recovered/Resolved]
  - Haemoglobin decreased [Unknown]
  - Weight decreased [Not Recovered/Not Resolved]
  - Constipation [Recovered/Resolved]
  - Blood pressure increased [Recovered/Resolved]
  - Joint swelling [Recovered/Resolved]
  - Product use in unapproved indication [Unknown]
  - Haematocrit decreased [Unknown]
